FAERS Safety Report 6023670-3 (Version None)
Quarter: 2008Q4

REPORT INFORMATION
  Report Type: 
  Country: None (occurrence: None)
  Receive Date: 20081229
  Receipt Date: 20081229
  Transmission Date: 20090506
  Serious: Yes (Other)
  Sender: FDA-Public Use
  Company Number: None

PATIENT
  Age: 30 Year
  Sex: Male
  Weight: 74.8435 kg

DRUGS (1)
  1. PROAIR HFA [Suspect]
     Indication: ASTHMA
     Dosage: 2 INHALATIONS WHEN NEEDED PO
     Route: 048

REACTIONS (2)
  - DRUG EFFECT DECREASED [None]
  - DRUG INEFFECTIVE [None]
